FAERS Safety Report 7671472-4 (Version None)
Quarter: 2011Q3

REPORT INFORMATION
  Report Type: 
  Country: None (occurrence: None)
  Receive Date: 20110809
  Receipt Date: 20110728
  Transmission Date: 20111222
  Serious: Yes (Life-Threatening, Hospitalization)
  Sender: FDA-Public Use
  Company Number: US-BAYER-201041871NA

PATIENT
  Age: 31 Year
  Sex: Female
  Weight: 90.703 kg

DRUGS (11)
  1. NEXIUM [Concomitant]
     Indication: GASTROOESOPHAGEAL REFLUX DISEASE
     Dosage: UNK
     Route: 048
     Dates: start: 20070101, end: 20100301
  2. ASCORBIC ACID [Concomitant]
     Dosage: UNK UNK, QD
     Route: 048
  3. NSAID'S [Concomitant]
  4. YAZ [Suspect]
     Indication: CONTRACEPTION
     Dosage: UNK UNK, UNK
     Route: 048
     Dates: start: 20060801, end: 20071201
  5. MOTRIN [Concomitant]
     Dosage: UNK UNK, PRN
     Route: 048
  6. NASONEX [Concomitant]
     Indication: MULTIPLE ALLERGIES
     Dosage: UNK
     Route: 045
     Dates: start: 20060101, end: 20100101
  7. VITAMIN TAB [Concomitant]
     Route: 048
  8. ORTHO-NOVUM 7/7/7-21 [Concomitant]
  9. YAZ [Suspect]
     Dosage: UNK
     Dates: start: 20080401, end: 20090601
  10. ALPRAZOLAM [Concomitant]
     Indication: ANXIETY
     Dosage: UNK
     Route: 048
     Dates: start: 20070101, end: 20080101
  11. ZYRTEC [Concomitant]
     Indication: MULTIPLE ALLERGIES
     Dosage: UNK
     Route: 048
     Dates: start: 20070101, end: 20080101

REACTIONS (2)
  - GALLBLADDER DISORDER [None]
  - CHOLECYSTITIS ACUTE [None]
